FAERS Safety Report 25359781 (Version 1)
Quarter: 2025Q2

REPORT INFORMATION
  Report Type: Spontaneous
  Country: US (occurrence: US)
  Receive Date: 20250526
  Receipt Date: 20250526
  Transmission Date: 20250716
  Serious: No
  Sender: TAKEDA
  Company Number: US-TAKEDA-2025TUS047578

PATIENT
  Sex: Female
  Weight: 54 kg

DRUGS (40)
  1. HYQVIA [Suspect]
     Active Substance: HUMAN IMMUNOGLOBULIN G\HYALURONIDASE (HUMAN RECOMBINANT)
     Indication: Product used for unknown indication
     Dosage: 20 GRAM, Q4WEEKS
     Dates: start: 2020
  2. Ranolazine celix [Concomitant]
  3. PILOCARPINE [Concomitant]
     Active Substance: PILOCARPINE
  4. ALLEGRA [Concomitant]
     Active Substance: FEXOFENADINE HYDROCHLORIDE
  5. IMDUR [Concomitant]
     Active Substance: ISOSORBIDE MONONITRATE
  6. BACLOFEN [Concomitant]
     Active Substance: BACLOFEN
  7. LUPRON DEPOT [Concomitant]
     Active Substance: LEUPROLIDE ACETATE
  8. ACETAMINOPHEN [Concomitant]
     Active Substance: ACETAMINOPHEN
  9. VITAMINS [Concomitant]
     Active Substance: VITAMINS
  10. OMEPRAZOLE [Concomitant]
     Active Substance: OMEPRAZOLE
  11. DILAUDID [Concomitant]
     Active Substance: HYDROMORPHONE HYDROCHLORIDE
  12. METOPROLOL TARTRATE [Concomitant]
     Active Substance: METOPROLOL TARTRATE
  13. PROBIOTICS NOS [Concomitant]
     Active Substance: PROBIOTICS NOS
  14. TYLENOL [Concomitant]
     Active Substance: ACETAMINOPHEN
  15. ALBUTEROL [Concomitant]
     Active Substance: ALBUTEROL
  16. ASPIRIN [Concomitant]
     Active Substance: ASPIRIN
  17. AYGESTIN [Concomitant]
     Active Substance: NORETHINDRONE ACETATE
  18. CAFFEINE [Concomitant]
     Active Substance: CAFFEINE
  19. CALCIUM [Concomitant]
     Active Substance: CALCIUM
  20. BUTALBITAL AND ACETAMINOPHEN [Concomitant]
     Active Substance: ACETAMINOPHEN\BUTALBITAL
  21. CLONAZEPAM [Concomitant]
     Active Substance: CLONAZEPAM
  22. DEXAMETHASONE [Concomitant]
     Active Substance: DEXAMETHASONE
  23. APIXABAN [Concomitant]
     Active Substance: APIXABAN
  24. MAGNESIUM [Concomitant]
     Active Substance: MAGNESIUM
  25. METHADONE [Concomitant]
     Active Substance: METHADONE HYDROCHLORIDE
  26. MIRTAZAPINE [Concomitant]
     Active Substance: MIRTAZAPINE
  27. MONTELUKAST SODIUM [Concomitant]
     Active Substance: MONTELUKAST SODIUM
  28. MUCINEX [Concomitant]
     Active Substance: GUAIFENESIN
  29. OMEGA-3 FATTY ACIDS [Concomitant]
     Active Substance: OMEGA-3 FATTY ACIDS
  30. PRAZOSIN [Concomitant]
     Active Substance: PRAZOSIN
  31. PREDNISONE [Concomitant]
     Active Substance: PREDNISONE
  32. PULMICORT TURBUHALER [Concomitant]
     Active Substance: BUDESONIDE
  33. REZUROCK [Concomitant]
     Active Substance: BELUMOSUDIL
  34. RUXOLITINIB [Concomitant]
     Active Substance: RUXOLITINIB
  35. SENNA [Concomitant]
     Active Substance: SENNOSIDES
  36. TIZANIDINE [Concomitant]
     Active Substance: TIZANIDINE
  37. URSODIOL [Concomitant]
     Active Substance: URSODIOL
  38. VENLAFAXINE [Concomitant]
     Active Substance: VENLAFAXINE HYDROCHLORIDE
  39. VIENVA TM [Concomitant]
     Active Substance: ETHINYL ESTRADIOL\LEVONORGESTREL
  40. VITAMIN D [Concomitant]
     Active Substance: VITAMIN D NOS

REACTIONS (2)
  - No adverse event [Unknown]
  - Product storage error [Unknown]
